FAERS Safety Report 9982135 (Version 1)
Quarter: 2014Q1

REPORT INFORMATION
  Report Type: Report from Study
  Country: US (occurrence: US)
  Receive Date: 20140307
  Receipt Date: 20140307
  Transmission Date: 20141002
  Serious: Yes (Hospitalization)
  Sender: FDA-Public Use
  Company Number: US-ABBVIE-13P-163-1178869-00

PATIENT
  Age: 60 Year
  Sex: Female
  Weight: 90.35 kg

DRUGS (9)
  1. HUMIRA [Suspect]
     Indication: RHEUMATOID ARTHRITIS
     Dates: start: 201204, end: 20131109
  2. SULFA [Suspect]
     Indication: EAR INFECTION
     Dates: start: 201311, end: 201311
  3. ADVAIR [Concomitant]
     Indication: PRODUCT USED FOR UNKNOWN INDICATION
  4. CRESTOR [Concomitant]
     Indication: BLOOD CHOLESTEROL INCREASED
  5. PLAQUENIL [Concomitant]
     Indication: RHEUMATOID ARTHRITIS
  6. PREMARIN [Concomitant]
     Indication: HORMONE REPLACEMENT THERAPY
  7. LEVOTHYROXINE [Concomitant]
     Indication: HYPOTHYROIDISM
  8. IBUPROFEN [Concomitant]
     Indication: ARTHRALGIA
  9. PREVACID [Concomitant]
     Indication: GASTROOESOPHAGEAL REFLUX DISEASE

REACTIONS (4)
  - Sinusitis [Recovered/Resolved]
  - Ear infection [Recovered/Resolved]
  - Eye swelling [Unknown]
  - Ear pruritus [Recovered/Resolved]
